FAERS Safety Report 4830729-2 (Version None)
Quarter: 2005Q4

REPORT INFORMATION
  Report Type: 
  Country: None (occurrence: None)
  Receive Date: 20051114
  Receipt Date: 20051104
  Transmission Date: 20060501
  Serious: Yes (Other)
  Sender: FDA-Public Use
  Company Number: 143274USA

PATIENT
  Age: 41 Year
  Sex: Female

DRUGS (1)
  1. ORAP [Suspect]
     Dosage: 16 MILLIGRAM, ORAL
     Route: 048
     Dates: start: 19920101

REACTIONS (1)
  - BREAST CYST [None]
